FAERS Safety Report 7943522-9 (Version None)
Quarter: 2011Q4

REPORT INFORMATION
  Report Type: 
  Country: None (occurrence: None)
  Receive Date: 20111128
  Receipt Date: 20111118
  Transmission Date: 20120403
  Serious: Yes (Hospitalization)
  Sender: FDA-Public Use
  Company Number: US-BAYER-2011-031506

PATIENT
  Age: 27 Year
  Sex: Female
  Weight: 90.703 kg

DRUGS (1)
  1. YAZ [Suspect]
     Indication: CONTRACEPTION
     Dosage: UNK
     Dates: start: 20080801, end: 20090901

REACTIONS (4)
  - CHOLELITHIASIS [None]
  - CHOLECYSTITIS ACUTE [None]
  - ABDOMINAL DISCOMFORT [None]
  - NAUSEA [None]
